FAERS Safety Report 13180767 (Version 1)
Quarter: 2017Q1

REPORT INFORMATION
  Report Type: Spontaneous
  Country: US (occurrence: US)
  Receive Date: 20170202
  Receipt Date: 20170202
  Transmission Date: 20170428
  Serious: No
  Sender: FDA-Public Use
  Company Number: US-SMITH AND NEPHEW, INC-2015SMT00690

PATIENT
  Age: 68 Year
  Sex: Male
  Weight: 126.98 kg

DRUGS (2)
  1. REGRANEX [Suspect]
     Active Substance: BECAPLERMIN
     Indication: SKIN ULCER
     Dosage: UNK UNK, ONCE
     Route: 061
     Dates: start: 20151225
  2. BABY ASPIRIN [Concomitant]
     Active Substance: ASPIRIN
     Dosage: 2 DOSAGE UNITS, 1X/DAY

REACTIONS (4)
  - Application site scab [Unknown]
  - Off label use [Unknown]
  - Expired product administered [Unknown]
  - X-ray abnormal [Unknown]

NARRATIVE: CASE EVENT DATE: 20151225
